FAERS Safety Report 17067847 (Version 2)
Quarter: 2019Q4

REPORT INFORMATION
  Report Type: Spontaneous
  Country: IT (occurrence: IT)
  Receive Date: 20191122
  Receipt Date: 20191210
  Transmission Date: 20200122
  Serious: Yes (Other)
  Sender: FDA-Public Use
  Company Number: NVSC2019IT040124

PATIENT
  Age: 42 Year
  Sex: Female

DRUGS (13)
  1. ANAKINRA [Concomitant]
     Active Substance: ANAKINRA
     Indication: PRODUCT USED FOR UNKNOWN INDICATION
     Dosage: 100 MG
     Route: 065
  2. ANAKINRA [Concomitant]
     Active Substance: ANAKINRA
     Dosage: 400 MG, QD
     Route: 065
  3. CYCLOSPORINE. [Suspect]
     Active Substance: CYCLOSPORINE
     Indication: PRODUCT USED FOR UNKNOWN INDICATION
     Dosage: 5 MG/KG, QD (UPTO)
     Route: 065
  4. INOTROP [Concomitant]
     Active Substance: UNSPECIFIED INGREDIENT
     Indication: PRODUCT USED FOR UNKNOWN INDICATION
     Route: 041
  5. ANAKINRA [Concomitant]
     Active Substance: ANAKINRA
     Dosage: UNK, Q72H (1 VIAL)
     Route: 065
  6. CYCLOSPORINE. [Suspect]
     Active Substance: CYCLOSPORINE
     Dosage: 150 MG, QD
     Route: 065
  7. ANAKINRA [Concomitant]
     Active Substance: ANAKINRA
     Dosage: 100 MG, QD
     Route: 065
  8. ANAKINRA [Concomitant]
     Active Substance: ANAKINRA
     Dosage: 100 MG, QOD
     Route: 065
  9. DELTACORTENE [Concomitant]
     Active Substance: PREDNISONE
     Indication: PRODUCT USED FOR UNKNOWN INDICATION
     Dosage: 0.5 MG/KG
     Route: 065
  10. METHYLPREDNISOLONE. [Concomitant]
     Active Substance: METHYLPREDNISOLONE
     Dosage: 120 MG, QD
     Route: 065
  11. CYCLOSPORINE. [Suspect]
     Active Substance: CYCLOSPORINE
     Dosage: 100 MG, QD
     Route: 065
  12. METHYLPREDNISOLONE. [Concomitant]
     Active Substance: METHYLPREDNISOLONE
     Indication: PRODUCT USED FOR UNKNOWN INDICATION
     Dosage: 125 MG, Q6H (UPTO)
     Route: 065
  13. PIPERACILLIN/TAZOBACTAM [Concomitant]
     Active Substance: PIPERACILLIN SODIUM\TAZOBACTAM SODIUM
     Indication: PRODUCT USED FOR UNKNOWN INDICATION
     Dosage: 4.5 G, Q8H
     Route: 065

REACTIONS (10)
  - Neutropenia [Recovered/Resolved]
  - Urosepsis [Unknown]
  - Cardiac arrest [Recovering/Resolving]
  - Urinary tract infection [Unknown]
  - Rash [Unknown]
  - Dyspnoea [Unknown]
  - Still^s disease [Recovering/Resolving]
  - Pyrexia [Recovered/Resolved]
  - Breast cancer [Unknown]
  - Pancytopenia [Unknown]

NARRATIVE: CASE EVENT DATE: 201812
